FAERS Safety Report 5443339-3 (Version None)
Quarter: 2007Q3

REPORT INFORMATION
  Report Type: 
  Country: None (occurrence: None)
  Receive Date: 20070831
  Receipt Date: 20070831
  Transmission Date: 20080115
  Serious: Yes (Hospitalization)
  Sender: FDA-Public Use
  Company Number: None

PATIENT
  Sex: Male
  Weight: 76 kg

DRUGS (1)
  1. TEMOZOLOMIDE [Suspect]
     Dosage: 7100 MG

REACTIONS (3)
  - ERYTHEMA [None]
  - EYE SWELLING [None]
  - HERPES ZOSTER OPHTHALMIC [None]
